FAERS Safety Report 12191750 (Version 2)
Quarter: 2016Q1

REPORT INFORMATION
  Report Type: Spontaneous
  Country: US (occurrence: US)
  Receive Date: 20160318
  Receipt Date: 20160330
  Transmission Date: 20160526
  Serious: No
  Sender: FDA-Public Use
  Company Number: US-PFIZER INC-2016102059

PATIENT
  Sex: Female

DRUGS (4)
  1. LUNESTA [Interacting]
     Active Substance: ESZOPICLONE
     Indication: INSOMNIA
     Dosage: UNK
  2. BELSOMRA [Interacting]
     Active Substance: SUVOREXANT
     Indication: INSOMNIA
     Dosage: 5 MG, UNK
     Dates: start: 20160216
  3. TIKOSYN [Suspect]
     Active Substance: DOFETILIDE
     Indication: ATRIAL FIBRILLATION
     Dosage: 0.25 MG, 2X/DAY
     Dates: start: 201509
  4. AMBIEN [Interacting]
     Active Substance: ZOLPIDEM TARTRATE
     Indication: INSOMNIA
     Dosage: UNK

REACTIONS (7)
  - Drug ineffective [Unknown]
  - Headache [Unknown]
  - Thinking abnormal [Unknown]
  - Gastrooesophageal reflux disease [Unknown]
  - Gastrointestinal sounds abnormal [Unknown]
  - Drug interaction [Not Recovered/Not Resolved]
  - Drug ineffective [Not Recovered/Not Resolved]

NARRATIVE: CASE EVENT DATE: 20160216
